FAERS Safety Report 9853354 (Version 1)
Quarter: 2014Q1

REPORT INFORMATION
  Report Type: Spontaneous
  Country: US (occurrence: US)
  Receive Date: 20140129
  Receipt Date: 20140129
  Transmission Date: 20141002
  Serious: Yes (Disabling, Other)
  Sender: FDA-Public Use
  Company Number: PHEH2014US001810

PATIENT
  Sex: Male

DRUGS (4)
  1. MYFORTIC [Suspect]
     Dosage: 720 MG, BID
     Dates: start: 20080704
  2. PROGRAF [Concomitant]
     Dosage: UNK UKN, UNK
  3. PREDNISONE [Concomitant]
     Dosage: UNK UKN, UNK
  4. BABY ASPIRIN [Concomitant]

REACTIONS (2)
  - Diabetic complication [Unknown]
  - Diabetes mellitus [Unknown]
